FAERS Safety Report 8118841-6 (Version None)
Quarter: 2012Q1

REPORT INFORMATION
  Report Type: 
  Country: None (occurrence: None)
  Receive Date: 20120207
  Receipt Date: 20120127
  Transmission Date: 20120608
  Serious: Yes (Other)
  Sender: FDA-Public Use
  Company Number: CA-JNJFOC-20120201491

PATIENT
  Sex: Male
  Weight: 83 kg

DRUGS (5)
  1. REMICADE [Suspect]
     Indication: COLITIS ULCERATIVE
     Route: 042
     Dates: start: 20070924, end: 20111117
  2. NEXIUM [Concomitant]
  3. IMURAN [Concomitant]
  4. CRESTOR [Concomitant]
  5. SINGULAIR [Concomitant]

REACTIONS (1)
  - LYMPHOMA [None]
